FAERS Safety Report 9049585 (Version 1)
Quarter: 2013Q1

REPORT INFORMATION
  Report Type: Report from Study
  Country: FR (occurrence: US)
  Receive Date: 20130205
  Receipt Date: 20130205
  Transmission Date: 20140127
  Serious: Yes (Other)
  Sender: FDA-Public Use
  Company Number: US-PFIZER INC-2013036490

PATIENT
  Age: 27 Year
  Sex: Male

DRUGS (4)
  1. CARBOPLATIN [Suspect]
     Indication: TESTIS CANCER
     Dosage: 1.6 G/M2 CONTINUOUSLY FOR 96 HOURS
  2. ETOPOSIDE [Suspect]
     Indication: TESTIS CANCER
     Dosage: 1.2 G/M2 INFUSED CONTINUOUSLY FOR 96 HOURS
  3. IFOSFAMIDE [Suspect]
     Indication: TESTIS CANCER
     Dosage: 14 G/M2 INFUSED CONTINUOUSLY FOR 96 HOURS
  4. MESNA [Concomitant]
     Dosage: 17.5 G/M2 FOR 120 HOURS

REACTIONS (1)
  - Renal failure [Unknown]
